FAERS Safety Report 5053706-8 (Version None)
Quarter: 2006Q3

REPORT INFORMATION
  Report Type: 
  Country: None (occurrence: None)
  Receive Date: 20060718
  Receipt Date: 20060509
  Transmission Date: 20061208
  Serious: Yes (Disabling)
  Sender: FDA-Public Use
  Company Number: NL-ROCHE-448090

PATIENT
  Age: 40 Year
  Sex: Male

DRUGS (3)
  1. PEG-INTERFERON A-2A (RO 25-8310) [Suspect]
     Indication: HEPATITIS C
     Route: 058
     Dates: start: 20060210
  2. COPEGUS [Concomitant]
     Indication: HEPATITIS C
     Route: 048
     Dates: start: 20060210
  3. UNSPECIFIED DRUG [Concomitant]
     Dosage: THE PATIENT PARTICIPATES IN A TRIAL CALLED POPS AND RECEIVES EITHER A PLACEBO OR AN ANTIDEPRESSANT +

REACTIONS (2)
  - DEAFNESS [None]
  - TINNITUS [None]
